FAERS Safety Report 6389125-1 (Version None)
Quarter: 2009Q4

REPORT INFORMATION
  Report Type: 
  Country: None (occurrence: None)
  Receive Date: 20091006
  Receipt Date: 20080624
  Transmission Date: 20100525
  Serious: Yes (Other)
  Sender: FDA-Public Use
  Company Number: US-ASTRAZENECA-2006UW12157

PATIENT
  Age: 43 Year
  Sex: Female
  Weight: 79.4 kg

DRUGS (19)
  1. SEROQUEL [Suspect]
     Indication: INSOMNIA
     Route: 048
     Dates: start: 19960101, end: 20000101
  2. SEROQUEL [Suspect]
     Indication: DEPRESSION
     Route: 048
     Dates: start: 19960101, end: 20000101
  3. SEROQUEL [Suspect]
     Indication: SLEEP DISORDER
     Route: 048
     Dates: start: 19960101, end: 20000101
  4. SEROQUEL [Suspect]
     Dosage: 25 MG - 100 MG
     Route: 048
     Dates: start: 20010321, end: 20060619
  5. SEROQUEL [Suspect]
     Dosage: 25 MG - 100 MG
     Route: 048
     Dates: start: 20010321, end: 20060619
  6. SEROQUEL [Suspect]
     Dosage: 25 MG - 100 MG
     Route: 048
     Dates: start: 20010321, end: 20060619
  7. METHADONE HYDROCHLORIDE [Concomitant]
     Dates: start: 20010101
  8. CLONAZEPAM [Concomitant]
     Dosage: DOSE - 1 MG - 4 MG
     Dates: start: 20010101
  9. TRIMETHOBENZAMIDE HCL [Concomitant]
     Dates: start: 20010101
  10. PROZAC [Concomitant]
  11. PREDNISONE TAB [Concomitant]
     Dates: start: 20010101
  12. LEXAPRO [Concomitant]
     Dosage: STRENGTH - 10 MG  DOSE - 10 MG, 20 MG
     Dates: start: 20060101
  13. ACTOS [Concomitant]
     Dates: start: 20060101
  14. TEKTURNA [Concomitant]
     Dosage: 150 MG DAILY
     Dates: start: 20070101
  15. LORTAB / VICODIN [Concomitant]
     Dosage: DOSE - 5/500 MG
     Route: 048
     Dates: start: 20060101
  16. XANAX [Concomitant]
     Dates: start: 20060101
  17. AVANDIA [Concomitant]
     Dosage: STRENGTH - 4/500 MG  DOSE - 2/250 MG DAILY
     Dates: start: 20060101
  18. SKELAXIN [Concomitant]
     Dates: start: 20010101
  19. SPIRONOLACTONE [Concomitant]
     Dates: start: 20010101

REACTIONS (12)
  - BRONCHITIS [None]
  - BRONCHITIS CHRONIC [None]
  - CARDIAC OPERATION [None]
  - CHEST INJURY [None]
  - CHRONIC OBSTRUCTIVE PULMONARY DISEASE [None]
  - DIABETES MELLITUS [None]
  - EMPHYSEMA [None]
  - GALLBLADDER DISORDER [None]
  - LUNG NEOPLASM SURGERY [None]
  - MASS [None]
  - NEOPLASM [None]
  - PNEUMONIA [None]
